FAERS Safety Report 17354981 (Version 5)
Quarter: 2020Q4

REPORT INFORMATION
  Report Type: Spontaneous
  Country: US (occurrence: US)
  Receive Date: 20200131
  Receipt Date: 20201003
  Transmission Date: 20210113
  Serious: Yes (Hospitalization, Congenital Anomaly, Other)
  Sender: FDA-Public Use
  Company Number: NVSC2020US025157

PATIENT
  Sex: Male

DRUGS (1)
  1. ZOFRAN [Suspect]
     Active Substance: ONDANSETRON HYDROCHLORIDE
     Indication: FOETAL EXPOSURE DURING PREGNANCY
     Dosage: MOTHER DOSE: 1 DF, TID, PRN
     Route: 064

REACTIONS (31)
  - Fallot^s tetralogy [Unknown]
  - Congenital skin dimples [Unknown]
  - Cardiac murmur [Unknown]
  - Tricuspid valve incompetence [Unknown]
  - Cyanosis neonatal [Unknown]
  - Oedema [Unknown]
  - Left-to-right cardiac shunt [Unknown]
  - Ventricular septal defect [Unknown]
  - Pleural effusion [Unknown]
  - Right ventricle outflow tract obstruction [Unknown]
  - Right-to-left cardiac shunt [Unknown]
  - Right aortic arch [Unknown]
  - Emotional distress [Unknown]
  - Pulmonary valve stenosis congenital [Unknown]
  - Respiratory tract infection [Unknown]
  - Foetal exposure during pregnancy [Unknown]
  - Blood glucose increased [Unknown]
  - Pulmonary artery stenosis congenital [Unknown]
  - Anxiety [Unknown]
  - Pain [Unknown]
  - Pneumonitis [Unknown]
  - Pyrexia [Unknown]
  - Oropharyngeal pain [Unknown]
  - Atelectasis [Unknown]
  - Cardiomegaly [Unknown]
  - Hypospadias [Unknown]
  - Congenital coronary artery malformation [Unknown]
  - Atrial septal defect [Unknown]
  - Endocardial fibroelastosis [Unknown]
  - Respiratory syncytial virus infection [Unknown]
  - White blood cell count increased [Unknown]
